FAERS Safety Report 21024760 (Version 2)
Quarter: 2022Q3

REPORT INFORMATION
  Report Type: Spontaneous
  Country: US (occurrence: US)
  Receive Date: 20220629
  Receipt Date: 20220802
  Transmission Date: 20221027
  Serious: Yes (Hospitalization)
  Sender: FDA-Public Use
  Company Number: US-SA-SAC20220629000235

PATIENT
  Age: 63 Year
  Sex: Female

DRUGS (5)
  1. DUPIXENT [Suspect]
     Active Substance: DUPILUMAB
     Indication: Nasal polyps
     Dosage: 300 MG, QOW
     Route: 058
     Dates: start: 20220615
  2. HYDROCHLOROTHIAZIDE [Concomitant]
     Active Substance: HYDROCHLOROTHIAZIDE
     Dosage: UNK
  3. VITAMIN D NOS [Concomitant]
     Active Substance: VITAMIN D NOS
     Dosage: VITAMIN D-400 10 MCG TABLET
  4. CALCIUM [Concomitant]
     Active Substance: CALCIUM
     Dosage: CALCIUM 500(1250) TABLET
  5. MONTELUKAST SODIUM [Concomitant]
     Active Substance: MONTELUKAST SODIUM
     Dosage: 10 MG

REACTIONS (6)
  - Injection site pain [Not Recovered/Not Resolved]
  - Rash [Unknown]
  - Dry skin [Unknown]
  - Skin exfoliation [Unknown]
  - Skin discomfort [Unknown]
  - Product use in unapproved indication [Unknown]

NARRATIVE: CASE EVENT DATE: 20220601
